FAERS Safety Report 18986454 (Version 1)
Quarter: 2021Q1

REPORT INFORMATION
  Report Type: Spontaneous
  Country: FR (occurrence: FR)
  Receive Date: 20210309
  Receipt Date: 20210309
  Transmission Date: 20210420
  Serious: Yes (Hospitalization, Other)
  Sender: FDA-Public Use
  Company Number: PT-SUNOVION-2020SUN003961

PATIENT

DRUGS (4)
  1. ZEBINIX [Suspect]
     Active Substance: ESLICARBAZEPINE ACETATE
     Indication: EPILEPSY
     Dosage: 800 MILLIGRAM, DAILY
     Route: 048
     Dates: start: 20190129
  2. URBANYL [Concomitant]
     Active Substance: CLOBAZAM
     Indication: EPILEPSY
     Dosage: UNK, AS NEEDED
     Route: 048
     Dates: start: 2015
  3. PROPRANOLOL [Concomitant]
     Active Substance: PROPRANOLOL HYDROCHLORIDE
     Indication: MIGRAINE
     Dosage: 40 MILLIGRAM, DAILY
     Route: 048
     Dates: start: 20170420
  4. LAMICTAL [Concomitant]
     Active Substance: LAMOTRIGINE
     Indication: EPILEPSY
     Dosage: 300 MILLIGRAM, DAILY
     Route: 048
     Dates: start: 2013

REACTIONS (8)
  - Nausea [Unknown]
  - Foetal hypokinesia [Unknown]
  - Weight decreased [Unknown]
  - Maternal exposure during pregnancy [Unknown]
  - Escherichia test positive [Unknown]
  - Foetal growth restriction [Unknown]
  - Oligohydramnios [Unknown]
  - Vomiting [Unknown]

NARRATIVE: CASE EVENT DATE: 2020
